FAERS Safety Report 8884415 (Version 2)
Quarter: 2012Q4

REPORT INFORMATION
  Report Type: Report from Study
  Country: GR (occurrence: GR)
  Receive Date: 20121102
  Receipt Date: 20121109
  Transmission Date: 20130627
  Serious: Yes (Hospitalization)
  Sender: FDA-Public Use
  Company Number: GR-ABBOTT-12P-066-1001078-00

PATIENT
  Age: 44 Year
  Sex: Female
  Weight: 51 kg

DRUGS (9)
  1. HUMIRA [Suspect]
     Indication: CROHN^S DISEASE
     Route: 058
     Dates: start: 20080326
  2. HUMIRA [Suspect]
     Route: 058
     Dates: start: 20090522, end: 20090522
  3. HUMIRA [Suspect]
     Dosage: week 2
     Route: 058
  4. HUMIRA [Suspect]
     Route: 058
     Dates: end: 20111215
  5. HUMIRA [Suspect]
     Route: 058
     Dates: start: 20120812
  6. IDEOS [Concomitant]
     Indication: LACTOSE INTOLERANCE
     Dosage: 1 tab 500mg calcium+400IU Vit D3
     Dates: start: 20100412
  7. IDEOS [Concomitant]
     Indication: COWS MILK FREE DIET
  8. IDEOS [Concomitant]
     Indication: OSTEOPOROSIS
  9. IDEOS [Concomitant]
     Indication: BONE LOSS

REACTIONS (1)
  - Small intestinal obstruction [Recovered/Resolved]
